FAERS Safety Report 21166635 (Version 1)
Quarter: 2022Q3

REPORT INFORMATION
  Report Type: Spontaneous
  Country: US (occurrence: None)
  Receive Date: 20220802
  Receipt Date: 20220802
  Transmission Date: 20221027
  Serious: No
  Sender: FDA-Public Use
  Company Number: None

PATIENT
  Age: 59 Year
  Sex: Male

DRUGS (1)
  1. SPRYCEL [Suspect]
     Active Substance: DASATINIB
     Indication: Product used for unknown indication
     Route: 048
     Dates: start: 202111

REACTIONS (4)
  - Platelet count decreased [None]
  - COVID-19 [None]
  - Therapy interrupted [None]
  - Leukaemia in remission [None]

NARRATIVE: CASE EVENT DATE: 20220101
